FAERS Safety Report 14281774 (Version 2)
Quarter: 2020Q2

REPORT INFORMATION
  Report Type: Spontaneous
  Country: AT (occurrence: AT)
  Receive Date: 20171213
  Receipt Date: 20200429
  Transmission Date: 20200713
  Serious: Yes (Other)
  Sender: FDA-Public Use
  Company Number: AT-BRISTOL-MYERS SQUIBB COMPANY-BMS-2017-111809

PATIENT
  Age: 64 Year
  Sex: Female

DRUGS (1)
  1. ELIQUIS [Suspect]
     Active Substance: APIXABAN
     Indication: PULMONARY EMBOLISM
     Dosage: 5 MG, BID
     Route: 048

REACTIONS (5)
  - Antibody test positive [Unknown]
  - Drug ineffective [Unknown]
  - Intentional product use issue [Unknown]
  - Deep vein thrombosis [Unknown]
  - Monoparesis [Unknown]

NARRATIVE: CASE EVENT DATE: 2017
